FAERS Safety Report 7197771-0 (Version None)
Quarter: 2010Q4

REPORT INFORMATION
  Report Type: 
  Country: None (occurrence: None)
  Receive Date: 20101227
  Receipt Date: 20101217
  Transmission Date: 20110411
  Serious: Yes (Life-Threatening, Hospitalization)
  Sender: FDA-Public Use
  Company Number: US-SANOFI-AVENTIS-2010SA075049

PATIENT
  Age: 67 Year
  Sex: Female
  Weight: 55 kg

DRUGS (10)
  1. CLOPIDOGREL BISULFATE [Suspect]
     Indication: ACUTE CORONARY SYNDROME
     Route: 065
     Dates: start: 20091231, end: 20101106
  2. ASPIRIN [Concomitant]
  3. PRILOSEC [Concomitant]
  4. PROZAC [Concomitant]
     Dates: start: 19970330
  5. INSULIN [Concomitant]
     Dates: start: 19970330
  6. LISINOPRIL [Concomitant]
     Dates: start: 20071027
  7. NIACIN [Concomitant]
     Dates: start: 20011219
  8. ZOCOR [Concomitant]
     Dates: start: 20091231
  9. TOPROL-XL [Concomitant]
     Dates: start: 20070321
  10. MULTI-VITAMINS [Concomitant]

REACTIONS (4)
  - CEREBRAL HAEMORRHAGE [None]
  - RIB FRACTURE [None]
  - ROAD TRAFFIC ACCIDENT [None]
  - STERNAL FRACTURE [None]
